FAERS Safety Report 9691245 (Version 1)
Quarter: 2013Q4

REPORT INFORMATION
  Report Type: Spontaneous
  Country: US (occurrence: US)
  Receive Date: 20131115
  Receipt Date: 20131115
  Transmission Date: 20140711
  Serious: No
  Sender: FDA-Public Use
  Company Number: US-009507513-1310USA015039

PATIENT
  Sex: Female

DRUGS (1)
  1. SYLATRON [Suspect]
     Indication: PRODUCT USED FOR UNKNOWN INDICATION
     Dosage: 880 MICROGRAM, UNK

REACTIONS (3)
  - Lethargy [Unknown]
  - Pyrexia [Unknown]
  - Muscle spasms [Unknown]
